FAERS Safety Report 7241784-7 (Version None)
Quarter: 2011Q1

REPORT INFORMATION
  Report Type: 
  Country: None (occurrence: None)
  Receive Date: 20110114
  Receipt Date: 20110103
  Transmission Date: 20110831
  Serious: Yes (Hospitalization)
  Sender: FDA-Public Use
  Company Number: DSJ-2011-00271

PATIENT
  Age: 8 Decade
  Sex: Female

DRUGS (5)
  1. VITAMIN A/VITAMIN B1/VITAMIN B3/VITAMIN B5/VITAMIN B6/VITAMIN B9/VITAM [Concomitant]
  2. BROMOPRIDE (BROMOPRIDE) (BROMOPRIDE) [Concomitant]
  3. BENICAR [Suspect]
     Indication: HYPERTENSION
     Dosage: 40 MG (40 MG, 1 IN 1 D, PER ORAL, 20 MG (20 MG, 1 IN 1 D), PER ORAL
     Route: 048
     Dates: start: 20090801, end: 20101201
  4. METFORMIN HCL [Concomitant]
  5. DIMETHYLPOLYSILOXANE (DIMETICONE) (DIMETICONE) [Concomitant]

REACTIONS (2)
  - ULCER [None]
  - CONDITION AGGRAVATED [None]
